FAERS Safety Report 6704614-5 (Version None)
Quarter: 2010Q2

REPORT INFORMATION
  Report Type: 
  Country: None (occurrence: None)
  Receive Date: 20100430
  Receipt Date: 20100420
  Transmission Date: 20101027
  Serious: Yes (Other)
  Sender: FDA-Public Use
  Company Number: GB-JNJFOC-20100405846

PATIENT
  Sex: Female
  Weight: 67 kg

DRUGS (9)
  1. INFLIXIMAB [Suspect]
     Indication: RHEUMATOID ARTHRITIS
     Route: 042
  2. OTHER BIOLOGICS [Suspect]
     Indication: DRUG USE FOR UNKNOWN INDICATION
  3. METHOTREXATE [Concomitant]
  4. CITALOPRAM [Concomitant]
  5. ACETAMINOPHEN AND CODEINE PHOSPHATE [Concomitant]
  6. FOLIC ACID [Concomitant]
  7. HRT [Concomitant]
  8. NAPROXEN [Concomitant]
  9. RANITIDINE [Concomitant]

REACTIONS (1)
  - HODGKIN'S DISEASE [None]
